FAERS Safety Report 5749919-X (Version None)
Quarter: 2008Q2

REPORT INFORMATION
  Report Type: 
  Country: None (occurrence: None)
  Receive Date: 20080527
  Receipt Date: 20080520
  Transmission Date: 20081010
  Serious: Yes (Hospitalization, Other)
  Sender: FDA-Public Use
  Company Number: US-ELI_LILLY_AND_COMPANY-US200805004102

PATIENT
  Sex: Female

DRUGS (3)
  1. HUMULIN R [Suspect]
  2. DARVOCET [Concomitant]
  3. IBUPROFEN [Concomitant]

REACTIONS (4)
  - CARDIAC DISORDER [None]
  - FRACTURE [None]
  - PAIN [None]
  - PNEUMONIA [None]
